FAERS Safety Report 6907346-3 (Version None)
Quarter: 2010Q3

REPORT INFORMATION
  Report Type: 
  Country: None (occurrence: None)
  Receive Date: 20100802
  Receipt Date: 20100719
  Transmission Date: 20110219
  Serious: Yes (Other)
  Sender: FDA-Public Use
  Company Number: WAES 1007USA00603

PATIENT
  Age: 14 Year
  Sex: Male

DRUGS (4)
  1. DECADRON [Suspect]
     Dosage: 1 MG/DAILY; PO
     Route: 048
  2. OXCARBAZEPINE [Suspect]
     Indication: TEMPORAL LOBE EPILEPSY
     Dosage: 1800 MG/DAILY; PO, 2400 MG/DAILY; PO, 600 MG/DAILY; PO
     Route: 048
  3. HYDROCORTONE [Suspect]
     Indication: GLUCOCORTICOIDS DECREASED
     Dosage: UNK; PO
     Route: 048
  4. PRASTERONE [Suspect]
     Dosage: UNK; PO
     Route: 048

REACTIONS (10)
  - ABDOMINAL DISCOMFORT [None]
  - BLOOD CORTICOTROPHIN INCREASED [None]
  - BLOOD CORTISOL ABNORMAL [None]
  - CONVULSION [None]
  - DRUG INTERACTION [None]
  - FATIGUE [None]
  - GLUCOCORTICOIDS DECREASED [None]
  - NAUSEA [None]
  - SKIN HYPERPIGMENTATION [None]
  - WEIGHT INCREASED [None]
